FAERS Safety Report 7741445-1 (Version None)
Quarter: 2011Q3

REPORT INFORMATION
  Report Type: 
  Country: None (occurrence: None)
  Receive Date: 20110909
  Receipt Date: 20110907
  Transmission Date: 20111222
  Serious: Yes (Hospitalization)
  Sender: FDA-Public Use
  Company Number: DE-ABBOTT-11P-062-0847048-00

PATIENT
  Sex: Female
  Weight: 78 kg

DRUGS (3)
  1. METHOTREXATE [Concomitant]
     Indication: PRODUCT USED FOR UNKNOWN INDICATION
     Dosage: 20 MG PER WEEK
     Dates: start: 20110728
  2. HUMIRA [Suspect]
     Indication: RHEUMATOID ARTHRITIS
     Dates: start: 20101229, end: 20110703
  3. GLUCOCORTICOIDS [Concomitant]
     Dosage: 5 MG DAILY
     Dates: start: 20110715

REACTIONS (2)
  - DRUG INEFFECTIVE [None]
  - RHEUMATOID ARTHRITIS [None]
